FAERS Safety Report 11722684 (Version 2)
Quarter: 2015Q4

REPORT INFORMATION
  Report Type: Spontaneous
  Country: US (occurrence: US)
  Receive Date: 20151111
  Receipt Date: 20151113
  Transmission Date: 20160304
  Serious: No
  Sender: FDA-Public Use
  Company Number: US-PFIZER INC-2015383538

PATIENT
  Age: 25 Year
  Sex: Male

DRUGS (2)
  1. VIBRAMYCIN [Suspect]
     Active Substance: DOXYCYCLINE
     Indication: SUBCUTANEOUS ABSCESS
     Dosage: 100 MG, 2X/DAY
     Route: 048
     Dates: start: 20151023
  2. VIBRAMYCIN [Suspect]
     Active Substance: DOXYCYCLINE
     Indication: CYST

REACTIONS (1)
  - Drug screen false positive [Unknown]
